FAERS Safety Report 23854715 (Version 2)
Quarter: 2024Q2

REPORT INFORMATION
  Report Type: Spontaneous
  Country: CN (occurrence: CN)
  Receive Date: 20240514
  Receipt Date: 20240521
  Transmission Date: 20240716
  Serious: Yes (Hospitalization)
  Sender: FDA-Public Use
  Company Number: CN-002147023-NVSC2024CN101634

PATIENT
  Age: 9 Year
  Sex: Male
  Weight: 30 kg

DRUGS (2)
  1. PATANOL [Suspect]
     Active Substance: OLOPATADINE HYDROCHLORIDE
     Indication: Conjunctivitis allergic
     Dosage: 1 DRP, TID
     Route: 047
     Dates: start: 20210309, end: 20210313
  2. SODIUM HYALURONATE [Suspect]
     Active Substance: HYALURONATE SODIUM
     Indication: Conjunctivitis allergic
     Dosage: 1 DRP, TID
     Route: 047
     Dates: start: 20210309, end: 20210313

REACTIONS (7)
  - Drug eruption [Recovering/Resolving]
  - Skin exfoliation [Unknown]
  - Pyrexia [Unknown]
  - Macule [Unknown]
  - Papule [Unknown]
  - Erythema [Recovered/Resolved]
  - Rash [Recovering/Resolving]

NARRATIVE: CASE EVENT DATE: 20210313
